FAERS Safety Report 12999812 (Version 2)
Quarter: 2016Q4

REPORT INFORMATION
  Report Type: Spontaneous
  Country: US (occurrence: US)
  Receive Date: 20161205
  Receipt Date: 20161222
  Transmission Date: 20170207
  Serious: No
  Sender: FDA-Public Use
  Company Number: US-ACTELION-A-US2016-142951

PATIENT
  Age: 76 Year
  Sex: Male

DRUGS (5)
  1. ADCIRCA [Concomitant]
     Active Substance: TADALAFIL
  2. DILTIAZEM. [Concomitant]
     Active Substance: DILTIAZEM
  3. SILDENAFIL CITRATE. [Concomitant]
     Active Substance: SILDENAFIL CITRATE
  4. OPSUMIT [Suspect]
     Active Substance: MACITENTAN
     Indication: PULMONARY ARTERIAL HYPERTENSION
     Dosage: 10 MG, QD
     Route: 048
     Dates: start: 20160906
  5. ELIQUIS [Concomitant]
     Active Substance: APIXABAN

REACTIONS (6)
  - Ear congestion [Unknown]
  - Sinusitis [Unknown]
  - Dysgeusia [Unknown]
  - Nasal congestion [Unknown]
  - Oedema peripheral [Unknown]
  - Hypoacusis [Unknown]
